FAERS Safety Report 4463368-6 (Version None)
Quarter: 2004Q3

REPORT INFORMATION
  Report Type: 
  Country: None (occurrence: None)
  Receive Date: 20040928
  Receipt Date: 20040916
  Transmission Date: 20050211
  Serious: Yes (Other)
  Sender: FDA-Public Use
  Company Number: 2004066841

PATIENT
  Age: 58 Year
  Sex: Female

DRUGS (2)
  1. CARDYL (ATORVASTATIN) [Suspect]
     Indication: HYPERCHOLESTEROLAEMIA
     Dosage: 40 MG (40 MG, 1 IN 1 D), ORAL
     Route: 048
     Dates: start: 20040701, end: 20040101
  2. SIMVASTATIN [Concomitant]

REACTIONS (1)
  - HEPATITIS TOXIC [None]
